FAERS Safety Report 8889572 (Version 1)
Quarter: 2012Q4

REPORT INFORMATION
  Report Type: Spontaneous
  Country: US (occurrence: None)
  Receive Date: 20121105
  Receipt Date: 20121105
  Transmission Date: 20130627
  Serious: No
  Sender: FDA-Public Use
  Company Number: None

PATIENT
  Sex: Female
  Weight: 72.58 kg

DRUGS (2)
  1. BUPROPION SR 150 MYLAN [Suspect]
     Indication: DEPRESSION
     Dosage: 2 2x
     Dates: start: 20121005, end: 20121012
  2. BUPROPION SR 150 MYLAN [Suspect]
     Indication: SMOKING CESSATION THERAPY
     Dosage: 2 2x
     Dates: start: 20121005, end: 20121012

REACTIONS (2)
  - Insomnia [None]
  - Middle insomnia [None]
